FAERS Safety Report 6486652-3 (Version None)
Quarter: 2009Q4

REPORT INFORMATION
  Report Type: 
  Country: None (occurrence: None)
  Receive Date: 20091210
  Receipt Date: 20090901
  Transmission Date: 20100525
  Serious: No
  Sender: FDA-Public Use
  Company Number: US-AMGEN-KDL358410

PATIENT
  Sex: Female

DRUGS (8)
  1. ENBREL [Suspect]
     Indication: PSORIASIS
     Dates: start: 20090620
  2. CRESTOR [Concomitant]
  3. AMLODIPINE [Concomitant]
  4. HUMULIN R [Concomitant]
  5. HYDROCHLOROTHIAZIDE [Concomitant]
  6. MELOXICAM [Concomitant]
  7. COZAAR [Concomitant]
  8. METOPROLOL [Concomitant]

REACTIONS (2)
  - INAPPROPRIATE SCHEDULE OF DRUG ADMINISTRATION [None]
  - OVERDOSE [None]
